FAERS Safety Report 12849285 (Version 1)
Quarter: 2016Q4

REPORT INFORMATION
  Report Type: Spontaneous
  Country: US (occurrence: US)
  Receive Date: 20161014
  Receipt Date: 20161014
  Transmission Date: 20170207
  Serious: Yes (Other)
  Sender: FDA-Public Use
  Company Number: US-BAYER-2016-194248

PATIENT

DRUGS (1)
  1. ALEVE [Suspect]
     Active Substance: NAPROXEN SODIUM
     Dosage: UNK

REACTIONS (7)
  - Malaise [Unknown]
  - Burning sensation [Unknown]
  - Lip swelling [Unknown]
  - Haematemesis [Unknown]
  - Muscle spasms [Unknown]
  - Adverse reaction [Unknown]
  - Swelling [Unknown]
